FAERS Safety Report 13194510 (Version 1)
Quarter: 2017Q1

REPORT INFORMATION
  Report Type: Spontaneous
  Country: US (occurrence: US)
  Receive Date: 20170207
  Receipt Date: 20170207
  Transmission Date: 20170428
  Serious: No
  Sender: FDA-Public Use
  Company Number: US-JAZZ-2016-US-003684

PATIENT
  Age: 56 Year
  Sex: Female

DRUGS (3)
  1. BACLOFEN. [Suspect]
     Active Substance: BACLOFEN
     Indication: PAIN
  2. MORPHINE SULF [Suspect]
     Active Substance: MORPHINE SULFATE
     Indication: PAIN
  3. PRIALT [Suspect]
     Active Substance: ZICONOTIDE ACETATE
     Indication: PAIN
     Dosage: UNK ?G, UNK
     Route: 037

REACTIONS (2)
  - Pain [Unknown]
  - Granuloma [Unknown]

NARRATIVE: CASE EVENT DATE: 2013
